FAERS Safety Report 11048905 (Version 1)
Quarter: 2015Q2

REPORT INFORMATION
  Report Type: Spontaneous
  Country: TR (occurrence: TR)
  Receive Date: 20150420
  Receipt Date: 20150420
  Transmission Date: 20150821
  Serious: Yes (Hospitalization)
  Sender: FDA-Public Use
  Company Number: PHHY2015TR045905

PATIENT
  Age: 36 Year
  Sex: Male

DRUGS (3)
  1. CLONAZEPAM. [Suspect]
     Active Substance: CLONAZEPAM
     Indication: PSYCHOTIC DISORDER
     Dosage: 2 MG, QD
     Route: 065
  2. RISPERIDONE. [Suspect]
     Active Substance: RISPERIDONE
     Indication: PSYCHOTIC DISORDER
     Dosage: 2 MG, QD
     Route: 065
  3. SUVOXAMINE [Concomitant]
     Indication: PSYCHOTIC DISORDER
     Dosage: 100 MG, QD
     Route: 065

REACTIONS (5)
  - Parkinsonism [Recovered/Resolved]
  - Muscle rigidity [Recovered/Resolved]
  - Masked facies [Recovered/Resolved]
  - Affective disorder [Recovered/Resolved]
  - Hypokinesia [Recovered/Resolved]
